FAERS Safety Report 16888760 (Version 2)
Quarter: 2019Q4

REPORT INFORMATION
  Report Type: Spontaneous
  Country: CN (occurrence: CN)
  Receive Date: 20191007
  Receipt Date: 20191007
  Transmission Date: 20200122
  Serious: Yes (Other)
  Sender: FDA-Public Use
  Company Number: CN-JNJFOC-20191006371

PATIENT
  Age: 2 Year

DRUGS (1)
  1. CETIRIZINE HYDROCHLORIDE. [Suspect]
     Active Substance: CETIRIZINE HYDROCHLORIDE
     Indication: PRODUCT USED FOR UNKNOWN INDICATION
     Dosage: 2.5 MILLILITER, ONCE DAILY (QD)
     Route: 065
     Dates: start: 20190924, end: 20190925

REACTIONS (4)
  - Accidental overdose [Unknown]
  - Abdominal pain [Unknown]
  - Conjunctivitis [Unknown]
  - Dizziness [Unknown]

NARRATIVE: CASE EVENT DATE: 201909
